FAERS Safety Report 10592784 (Version 1)
Quarter: 2014Q4

REPORT INFORMATION
  Report Type: Spontaneous
  Country: DE (occurrence: DE)
  Receive Date: 20141119
  Receipt Date: 20141119
  Transmission Date: 20150529
  Serious: Yes (Hospitalization)
  Sender: FDA-Public Use
  Company Number: DE-PFIZER INC-2014314841

PATIENT
  Age: 1 Day
  Sex: Male
  Weight: 3.4 kg

DRUGS (3)
  1. SERTRALINE HCL [Suspect]
     Active Substance: SERTRALINE HYDROCHLORIDE
     Indication: DEPRESSION
     Dosage: 25 MG, DAILY
     Route: 064
     Dates: start: 20140416, end: 20140422
  2. PARACETAMOL [Concomitant]
     Active Substance: ACETAMINOPHEN
     Indication: TOOTHACHE
     Dosage: 500 MG, 1X/DAY
     Route: 064
     Dates: start: 2014, end: 2014
  3. SERTRALINE HCL [Suspect]
     Active Substance: SERTRALINE HYDROCHLORIDE
     Dosage: 50 MG, DAILY
     Route: 064
     Dates: start: 20140423, end: 20140529

REACTIONS (3)
  - Respiratory disorder neonatal [Recovered/Resolved]
  - Agitation neonatal [Recovered/Resolved]
  - Maternal exposure during pregnancy [Recovered/Resolved]

NARRATIVE: CASE EVENT DATE: 20140416
